FAERS Safety Report 4696807-6 (Version None)
Quarter: 2005Q2

REPORT INFORMATION
  Report Type: 
  Country: None (occurrence: None)
  Receive Date: 20050622
  Receipt Date: 20050518
  Transmission Date: 20051028
  Serious: Yes (Death, Hospitalization, Other)
  Sender: FDA-Public Use
  Company Number: US-BRISTOL-MYERS SQUIBB COMPANY-12973723

PATIENT
  Age: 72 Year
  Sex: Male

DRUGS (12)
  1. CETUXIMAB [Suspect]
     Indication: NON-SMALL CELL LUNG CANCER
     Dosage: 1ST CETUXIMAB INFUSION ADMINISTERED ON 24-MAR-2005. DOSE DELAYED/OMITTED.
     Route: 042
     Dates: start: 20050513, end: 20050513
  2. CARBOPLATIN [Suspect]
     Indication: NON-SMALL CELL LUNG CANCER
     Dosage: 1ST CARBOPLATIN INFUSION ADMINISTERED ON 24-MAR-2005.
     Route: 042
     Dates: start: 20050506, end: 20050506
  3. TAXOL [Suspect]
     Indication: NON-SMALL CELL LUNG CANCER
     Dosage: 1ST TAXOL INFUSION ADMINISTERED ON 24-MAR-2005.
     Route: 042
     Dates: start: 20050506, end: 20050506
  4. LOVASTATIN [Concomitant]
     Dates: start: 20040901
  5. ALLOPURINOL [Concomitant]
     Dates: start: 19950101
  6. CHONDROITIN [Concomitant]
     Dates: start: 19980101
  7. GLUCOSAMINE [Concomitant]
     Dates: start: 19980101
  8. CARDIZEM SR [Concomitant]
     Dosage: REPORTED AS CARDIZEM LA
     Dates: start: 20050301
  9. K-DUR 10 [Concomitant]
     Dates: start: 19950201
  10. ATENOLOL [Concomitant]
     Dates: start: 19950701
  11. HYDROCHLOROTHIAZIDE [Concomitant]
     Dates: start: 19900201
  12. ASPIRIN [Concomitant]
     Dates: start: 19950701, end: 20050323

REACTIONS (6)
  - ATRIAL FIBRILLATION [None]
  - CONFUSIONAL STATE [None]
  - DISORIENTATION [None]
  - PNEUMONIA [None]
  - PNEUMONITIS [None]
  - RESPIRATORY FAILURE [None]
